FAERS Safety Report 9064646 (Version 4)
Quarter: 2013Q2

REPORT INFORMATION
  Report Type: Spontaneous
  Country: JP (occurrence: JP)
  Receive Date: 20130214
  Receipt Date: 20130411
  Transmission Date: 20140414
  Serious: Yes (Death, Disabling, Other)
  Sender: FDA-Public Use
  Company Number: JP-OTSUKA-JP-2013-10280

PATIENT
  Age: 82 Year
  Sex: Male
  Weight: 51 kg

DRUGS (15)
  1. SAMSCA [Suspect]
     Indication: CARDIAC FAILURE
     Dosage: 7.5 MG MILLIGRAM(S), QD
     Route: 048
     Dates: start: 20130112, end: 20130114
  2. SAMSCA [Suspect]
     Dosage: 3.75 MG MILLIGRAM(S), QD
     Route: 048
     Dates: start: 20130122, end: 20130124
  3. SAMSCA [Suspect]
     Dosage: 1.875 MG MILLIGRAM(S), QD
     Route: 048
     Dates: start: 20130125, end: 20130125
  4. FUROSEMIDE [Suspect]
     Indication: HYPERNATRAEMIA
     Dosage: 10 MG MILLIGRAM(S), BID
     Route: 041
     Dates: start: 20130117, end: 20130123
  5. FUROSEMIDE [Suspect]
     Indication: GENERALISED OEDEMA
  6. MICARDIS [Concomitant]
     Indication: HYPERTENSION
     Dosage: 40 MG MILLIGRAM(S), QD
     Route: 048
     Dates: end: 20130125
  7. ALLOZYM [Concomitant]
     Indication: HYPERURICAEMIA
     Dosage: 100 MG MILLIGRAM(S), QD
     Route: 048
     Dates: end: 20130125
  8. CILOSTAZOL [Concomitant]
     Indication: PERIPHERAL ARTERIAL OCCLUSIVE DISEASE
     Dosage: 50 MG MILLIGRAM(S), QD
     Route: 048
     Dates: end: 20130125
  9. WINTERMIN [Concomitant]
     Indication: RESTLESSNESS
     Dosage: 25 MG MILLIGRAM(S), QD
     Route: 048
     Dates: start: 20120709, end: 20130126
  10. TIAPRIM [Concomitant]
     Indication: RESTLESSNESS
     Dosage: 50 MG MILLIGRAM(S), QD
     Route: 048
     Dates: start: 20120709, end: 20130126
  11. DIART [Concomitant]
     Indication: CARDIAC FAILURE
     Dosage: 60 MG MILLIGRAM(S), BID
     Route: 048
     Dates: start: 20121220, end: 20130116
  12. DIART [Concomitant]
     Dosage: 30 MG MILLIGRAM(S), BID
     Route: 048
     Dates: start: 20130125
  13. WARFARIN [Concomitant]
     Indication: ATRIAL FIBRILLATION
     Dosage: 3 MG MILLIGRAM(S), QD
     Route: 048
     Dates: end: 20130107
  14. WARFARIN [Concomitant]
     Dosage: 1.5 MG MILLIGRAM(S), QD
     Route: 048
     Dates: start: 20130118, end: 20130121
  15. WARFARIN [Concomitant]
     Dosage: 1 MG MILLIGRAM(S), QD
     Route: 048
     Dates: start: 20130124, end: 20130125

REACTIONS (7)
  - Aspiration [Fatal]
  - Renal impairment [Recovering/Resolving]
  - Renal impairment [Unknown]
  - Dehydration [Not Recovered/Not Resolved]
  - Hypernatraemia [Recovering/Resolving]
  - Blood urea increased [Unknown]
  - Blood creatinine increased [Unknown]
